FAERS Safety Report 18026106 (Version 1)
Quarter: 2020Q3

REPORT INFORMATION
  Report Type: Spontaneous
  Country: SK (occurrence: SK)
  Receive Date: 20200715
  Receipt Date: 20200715
  Transmission Date: 20201103
  Serious: Yes (Other)
  Sender: FDA-Public Use
  Company Number: SK-VIIV HEALTHCARE LIMITED-SK2020EME125584

PATIENT
  Age: 73 Year
  Sex: Male

DRUGS (1)
  1. TRIUMEQ [Suspect]
     Active Substance: ABACAVIR SULFATE\DOLUTEGRAVIR SODIUM\LAMIVUDINE
     Indication: HIV INFECTION
     Dosage: UNK

REACTIONS (5)
  - Myocardial infarction [Unknown]
  - Cardiotoxicity [Unknown]
  - Ventricular tachycardia [Unknown]
  - Carbohydrate metabolism disorder [Unknown]
  - Disease recurrence [Unknown]
